FAERS Safety Report 8607921-4 (Version None)
Quarter: 2012Q3

REPORT INFORMATION
  Report Type: 
  Country: None (occurrence: None)
  Receive Date: 20120821
  Receipt Date: 20110923
  Transmission Date: 20120928
  Serious: No
  Sender: FDA-Public Use
  Company Number: US-MYLANLABS-2011S1020009

PATIENT
  Age: 72 Year
  Sex: Female
  Weight: 72.58 kg

DRUGS (3)
  1. NITROFURANTOIN [Suspect]
     Indication: URINARY TRACT INFECTION
     Dates: start: 20110909, end: 20110910
  2. NITROFURANTOIN [Suspect]
     Dates: start: 20110910, end: 20110911
  3. NITROFURANTOIN [Suspect]
     Dates: start: 20110911, end: 20110911

REACTIONS (3)
  - ARTHRALGIA [None]
  - HEADACHE [None]
  - FIBROMYALGIA [None]
